FAERS Safety Report 7388395-0 (Version None)
Quarter: 2011Q2

REPORT INFORMATION
  Report Type: 
  Country: None (occurrence: None)
  Receive Date: 20110401
  Receipt Date: 20110324
  Transmission Date: 20111010
  Serious: Yes (Other)
  Sender: FDA-Public Use
  Company Number: BR-US-EMD SERONO, INC.-7050594

PATIENT
  Sex: Female

DRUGS (2)
  1. METICORTEN [Concomitant]
  2. SAIZEN [Suspect]
     Indication: GROWTH HORMONE DEFICIENCY
     Dates: start: 20110216

REACTIONS (3)
  - HYPOGLYCAEMIA [None]
  - EATING DISORDER [None]
  - ARRHYTHMIA [None]
